FAERS Safety Report 25438336 (Version 2)
Quarter: 2025Q3

REPORT INFORMATION
  Report Type: Spontaneous
  Country: US (occurrence: None)
  Receive Date: 20250616
  Receipt Date: 20250724
  Transmission Date: 20251020
  Serious: Yes (Hospitalization, Other)
  Sender: NATCO PHARMA
  Company Number: US-NATCOUSA-2025-NATCOUSA-000322

PATIENT
  Age: 44 Year
  Sex: Male

DRUGS (3)
  1. NITROGLYCERIN [Suspect]
     Active Substance: NITROGLYCERIN
     Indication: Angina pectoris
     Route: 060
  2. HEPARIN [Suspect]
     Active Substance: HEPARIN SODIUM
     Indication: Angina pectoris
  3. NITROGLYCERIN [Suspect]
     Active Substance: NITROGLYCERIN
     Indication: Chest pain
     Route: 042

REACTIONS (2)
  - Off label use [Unknown]
  - Drug ineffective [Unknown]
